FAERS Safety Report 13192686 (Version 1)
Quarter: 2017Q1

REPORT INFORMATION
  Report Type: Spontaneous
  Country: US (occurrence: US)
  Receive Date: 20170207
  Receipt Date: 20170207
  Transmission Date: 20170428
  Serious: Yes (Disabling)
  Sender: FDA-Public Use
  Company Number: None

PATIENT
  Age: 73 Year
  Sex: Female
  Weight: 53.07 kg

DRUGS (8)
  1. HEATHER^S TUMMY FIBER [Concomitant]
  2. VITAMIN C [Concomitant]
     Active Substance: ASCORBIC ACID
  3. MAGNESIUM [Concomitant]
     Active Substance: MAGNESIUM
  4. GADOLINIUM [Suspect]
     Active Substance: GADOLINIUM
     Indication: NUCLEAR MAGNETIC RESONANCE IMAGING
     Dosage: ?          QUANTITY:{TED IN 0RD:?R J, A ^I ,3;?
     Dates: start: 20141102
  5. CALCIUM [Concomitant]
     Active Substance: CALCIUM
  6. VITAMIN B COMPLEX [Concomitant]
     Active Substance: CYANOCOBALAMIN\DEXPANTHENOL\NIACINAMIDE\PYRIDOXINE HYDROCHLORIDE\RIBOFLAVIN 5^-PHOSPHATE SODIUM\THIAMINE HYDROCHLORIDE\VITAMIN B COMPLEX
  7. ACACIA GUM POWDER [Concomitant]
  8. VITAMIN D3 [Concomitant]
     Active Substance: CHOLECALCIFEROL

REACTIONS (12)
  - Confusional state [None]
  - Pollakiuria [None]
  - Urine output increased [None]
  - Memory impairment [None]
  - Thyroid disorder [None]
  - Depression [None]
  - Immune system disorder [None]
  - Weight decreased [None]
  - Insomnia [None]
  - Myalgia [None]
  - Nervousness [None]
  - Anger [None]

NARRATIVE: CASE EVENT DATE: 20141107
